FAERS Safety Report 26173810 (Version 1)
Quarter: 2025Q4

REPORT INFORMATION
  Report Type: Spontaneous
  Country: GB (occurrence: GB)
  Receive Date: 20251218
  Receipt Date: 20251218
  Transmission Date: 20260118
  Serious: Yes (Other)
  Sender: SANOFI AVENTIS
  Company Number: None

PATIENT
  Age: 31 Year
  Sex: Male
  Weight: 92 kg

DRUGS (1)
  1. TEPLIZUMAB [Suspect]
     Active Substance: TEPLIZUMAB
     Indication: Presymptomatic type 1 diabetes mellitus
     Dosage: 2266 MCG DAILY BY DAY 14 LAST DAY OF
     Route: 065
     Dates: start: 20251009, end: 20251022

REACTIONS (1)
  - Lymphadenopathy [Unknown]

NARRATIVE: CASE EVENT DATE: 20251103
